FAERS Safety Report 19714623 (Version 1)
Quarter: 2021Q3

REPORT INFORMATION
  Report Type: Spontaneous
  Country: FR (occurrence: FR)
  Receive Date: 20210818
  Receipt Date: 20210818
  Transmission Date: 20211014
  Serious: Yes (Other)
  Sender: FDA-Public Use
  Company Number: FR-DRREDDYS-SPO/FRA/21/0138932

PATIENT
  Age: 20 Year
  Sex: Female

DRUGS (3)
  1. CEFEPIME [Suspect]
     Active Substance: CEFEPIME HYDROCHLORIDE
     Indication: INFECTION
     Dosage: 2 G TOUTES LES HEURES=
     Dates: start: 20210402, end: 20210407
  2. METRONIDAZOLE (BENZOATE DE) [Suspect]
     Active Substance: METRONIDAZOLE BENZOATE
     Indication: INFECTION
     Dosage: 500 MG 3X/JOUR
     Dates: start: 20210402, end: 20210409
  3. DAPTOMYCIN. [Suspect]
     Active Substance: DAPTOMYCIN
     Indication: INFECTION
     Dosage: 700MG/JOUR (700MG/DAY)
     Dates: start: 20210402, end: 20210408

REACTIONS (1)
  - Hepatic cytolysis [Recovering/Resolving]

NARRATIVE: CASE EVENT DATE: 20210406
